FAERS Safety Report 4348563-9 (Version None)
Quarter: 2004Q2

REPORT INFORMATION
  Report Type: 
  Country: None (occurrence: None)
  Receive Date: 20040422
  Receipt Date: 20040407
  Transmission Date: 20050107
  Serious: Yes (Hospitalization)
  Sender: FDA-Public Use
  Company Number: JP_040402945

PATIENT
  Age: 19 Year
  Sex: Male

DRUGS (3)
  1. ZYPREXA [Suspect]
     Indication: SCHIZOPHRENIA
     Dosage: 15 MG DAY
     Dates: start: 20040131, end: 20040301
  2. NITRAZEPAM [Concomitant]
  3. SENNOSIDE A+B [Concomitant]

REACTIONS (1)
  - DRUG ERUPTION [None]
